FAERS Safety Report 25340467 (Version 3)
Quarter: 2025Q3

REPORT INFORMATION
  Report Type: Spontaneous
  Country: US (occurrence: US)
  Receive Date: 20250521
  Receipt Date: 20250813
  Transmission Date: 20251021
  Serious: Yes (Death, Hospitalization)
  Sender: JOHNSON AND JOHNSON
  Company Number: US-JNJFOC-20250524173

PATIENT
  Age: 70 Year
  Sex: Male
  Weight: 71.67 kg

DRUGS (1)
  1. CARVYKTI [Suspect]
     Active Substance: CILTACABTAGENE AUTOLEUCEL
     Indication: Plasma cell myeloma
     Route: 041
     Dates: start: 20240827

REACTIONS (2)
  - Autoimmune colitis [Fatal]
  - Septic shock [Fatal]

NARRATIVE: CASE EVENT DATE: 20241201
